FAERS Safety Report 10688410 (Version 4)
Quarter: 2015Q1

REPORT INFORMATION
  Report Type: Report from Study
  Country: GB (occurrence: GB)
  Receive Date: 20150102
  Receipt Date: 20150218
  Transmission Date: 20150720
  Serious: Yes (Death, Other)
  Sender: FDA-Public Use
  Company Number: GB-GLAXOSMITHKLINE-GB2014033574

PATIENT

DRUGS (4)
  1. VENTOLIN [Concomitant]
     Active Substance: ALBUTEROL SULFATE
     Indication: CHRONIC OBSTRUCTIVE PULMONARY DISEASE
     Dosage: 100 UG Q4D
     Route: 055
     Dates: start: 20091118, end: 20131222
  2. BUDESONIDE + FORMOTEROL FUMARATE DIHYDRATE [Suspect]
     Active Substance: BUDESONIDE\FORMOTEROL FUMARATE DIHYDRATE
     Indication: CHRONIC OBSTRUCTIVE PULMONARY DISEASE
     Dosage: 400/12 UG BID
     Route: 055
     Dates: start: 20140721, end: 20140806
  3. FLUTICASONE FUROATE + VILANTEROL TRIFENATATE [Suspect]
     Active Substance: FLUTICASONE FUROATE\VILANTEROL TRIFENATATE
     Indication: CHRONIC OBSTRUCTIVE PULMONARY DISEASE
     Dosage: 100/25 UG QD
     Route: 055
     Dates: start: 20140720
  4. SERETIDE [Concomitant]
     Active Substance: FLUTICASONE FUROATE\SALMETEROL XINAFOATE
     Indication: CHRONIC OBSTRUCTIVE PULMONARY DISEASE
     Dosage: 500 UG, BID
     Route: 055
     Dates: start: 20100210, end: 20131222

REACTIONS (3)
  - Pulmonary embolism [Fatal]
  - Deep vein thrombosis [Fatal]
  - Cerebrovascular disorder [Fatal]

NARRATIVE: CASE EVENT DATE: 20141207
